FAERS Safety Report 9461363 (Version 2)
Quarter: 2013Q4

REPORT INFORMATION
  Report Type: Spontaneous
  Country: BE (occurrence: BE)
  Receive Date: 20130816
  Receipt Date: 20131025
  Transmission Date: 20140711
  Serious: Yes (Hospitalization, Other)
  Sender: FDA-Public Use
  Company Number: BE-ELI_LILLY_AND_COMPANY-BE201308003167

PATIENT
  Sex: Male
  Weight: 111 kg

DRUGS (13)
  1. ALIMTA [Suspect]
     Indication: LUNG ADENOCARCINOMA
     Dosage: UNK
     Route: 042
     Dates: start: 20130710, end: 20130911
  2. CISPLATIN [Suspect]
     Indication: LUNG ADENOCARCINOMA
     Route: 042
  3. FOLAVIT [Concomitant]
     Dosage: 0.4 MG, UNK
     Route: 048
     Dates: start: 20130702, end: 20130926
  4. MEDROL [Concomitant]
     Dosage: 32 MG, UNK
     Route: 048
     Dates: start: 20130710, end: 20130911
  5. LITICAN [Concomitant]
     Dosage: 50 MG, UNK
     Route: 048
     Dates: start: 20130710, end: 20130911
  6. PANTOMED                           /01263204/ [Concomitant]
     Dosage: 30 MG, UNK
     Route: 048
  7. TRADONAL [Concomitant]
     Dosage: 150 MG, BID
     Route: 048
  8. ZYLORIC [Concomitant]
     Dosage: 300 MG, QD
     Route: 048
  9. SYMBICORT FORTE [Concomitant]
     Dosage: 2 UNK, UNK
  10. SPIRIVA [Concomitant]
  11. DEXA RHINOSPRAY N [Concomitant]
  12. DAFLON [Concomitant]
     Dosage: 1000 MG, TID
     Dates: start: 20130716, end: 20130903
  13. VITAMIN B12 [Concomitant]

REACTIONS (3)
  - Palmar-plantar erythrodysaesthesia syndrome [Recovering/Resolving]
  - Gamma-glutamyltransferase increased [Unknown]
  - Alanine aminotransferase increased [Unknown]
